FAERS Safety Report 15191732 (Version 1)
Quarter: 2018Q3

REPORT INFORMATION
  Report Type: Spontaneous
  Country: FR (occurrence: FR)
  Receive Date: 20180724
  Receipt Date: 20180724
  Transmission Date: 20181010
  Serious: Yes (Other)
  Sender: FDA-Public Use
  Company Number: FR-PFIZER INC-2018293508

PATIENT
  Sex: Female

DRUGS (4)
  1. DOCETAXEL. [Suspect]
     Active Substance: DOCETAXEL
     Indication: TRIPLE NEGATIVE BREAST CANCER
     Dosage: UNK, CYCLIC (FOUR CYCLES, (T: 100 MG/M{SUP}2{/SUP}) Q.3 WEEKS)
  2. FLUOROURACIL. [Suspect]
     Active Substance: FLUOROURACIL
     Indication: TRIPLE NEGATIVE BREAST CANCER
     Dosage: 500 MG, CYCLIC (FOUR CYCLES,MG/M{SUP}2{/SUP}, Q.3 WEEKS)
  3. EPIRUBICIN HCL [Suspect]
     Active Substance: EPIRUBICIN HYDROCHLORIDE
     Indication: TRIPLE NEGATIVE BREAST CANCER
     Dosage: 100 MG, CYCLIC (FOUR CYCLES,MG/M{SUP}2{/SUP}, Q.3 WEEKS)
  4. CYCLOPHOSPHAMIDE. [Suspect]
     Active Substance: CYCLOPHOSPHAMIDE
     Indication: TRIPLE NEGATIVE BREAST CANCER
     Dosage: 500 MG, CYCLIC (FOUR CYCLES,MG/M{SUP}2{/SUP}, Q.3 WEEKS)

REACTIONS (1)
  - Skin toxicity [Unknown]
